FAERS Safety Report 19869529 (Version 1)
Quarter: 2021Q3

REPORT INFORMATION
  Report Type: Spontaneous
  Country: FR (occurrence: FR)
  Receive Date: 20210923
  Receipt Date: 20210923
  Transmission Date: 20211014
  Serious: Yes (Hospitalization, Other)
  Sender: FDA-Public Use
  Company Number: FR-AUROBINDO-AUR-APL-2021-039742

PATIENT
  Age: 759 Month
  Sex: Female

DRUGS (9)
  1. CARBOPLATIN SOLUTION FOR INFUSION [Suspect]
     Active Substance: CARBOPLATIN
     Dosage: 430 MILLIGRAM (AUC)
     Route: 042
     Dates: start: 20190805, end: 20190805
  2. CHLORIDE [Concomitant]
     Active Substance: CHLORIDE ION
     Indication: HYPOKALAEMIA
     Dosage: 1800 MILLIGRAM, ONCE A DAY
     Route: 048
  3. OLAPARIB. [Suspect]
     Active Substance: OLAPARIB
     Indication: OVARIAN CANCER
     Dosage: UNK
     Route: 048
  4. CARBOPLATIN SOLUTION FOR INFUSION [Suspect]
     Active Substance: CARBOPLATIN
     Indication: OVARIAN CANCER
     Dosage: 750 MILLIGRAM (AUC)
     Route: 042
     Dates: start: 20190705, end: 20190705
  5. MAGNESIUM [Concomitant]
     Active Substance: MAGNESIUM
     Indication: VASCULAR GRAFT
     Dosage: 100 MILLIGRAM, ONCE A DAY
     Route: 048
  6. DURVALUMAB. [Suspect]
     Active Substance: DURVALUMAB
     Indication: OVARIAN CANCER
     Dosage: UNK
     Route: 042
  7. IRBESARTAN. [Concomitant]
     Active Substance: IRBESARTAN
     Indication: HYPERTENSION
     Dosage: 150 MILLIGRAM, ONCE A DAY
     Route: 048
  8. LOVENOX [Concomitant]
     Active Substance: ENOXAPARIN SODIUM
     Indication: ANTICOAGULANT THERAPY
     Dosage: UNK, ONCE A DAY
     Route: 058
     Dates: start: 20190514
  9. PACLITAXEL CONCENTRATE FOR SOLUTION FOR INFUSION [Suspect]
     Active Substance: PACLITAXEL
     Indication: OVARIAN CANCER
     Dosage: 175 MILLIGRAM/SQ. METER
     Route: 042
     Dates: start: 20190705, end: 20190705

REACTIONS (4)
  - Asthenia [Recovered/Resolved]
  - Diarrhoea [Recovered/Resolved]
  - Neuropathy peripheral [Recovered/Resolved]
  - Pancytopenia [Recovered/Resolved]

NARRATIVE: CASE EVENT DATE: 20190705
